FAERS Safety Report 24592907 (Version 1)
Quarter: 2024Q4

REPORT INFORMATION
  Report Type: Spontaneous
  Country: US (occurrence: None)
  Receive Date: 20241107
  Receipt Date: 20241107
  Transmission Date: 20250115
  Serious: Yes (Hospitalization)
  Sender: Public
  Company Number: None

PATIENT
  Age: 74 Year
  Sex: Male

DRUGS (1)
  1. APIXABAN [Suspect]
     Active Substance: APIXABAN
     Indication: Atrial fibrillation

REACTIONS (6)
  - Gastrointestinal haemorrhage [None]
  - Fall [None]
  - Epistaxis [None]
  - Melaena [None]
  - Duodenitis [None]
  - Aortic stenosis [None]

NARRATIVE: CASE EVENT DATE: 20240401
